FAERS Safety Report 9442699 (Version 1)
Quarter: 2013Q3

REPORT INFORMATION
  Report Type: Spontaneous
  Country: RS (occurrence: RS)
  Receive Date: 20130806
  Receipt Date: 20130806
  Transmission Date: 20140515
  Serious: Yes (Other)
  Sender: FDA-Public Use
  Company Number: PHHY2013RS081140

PATIENT
  Sex: 0

DRUGS (5)
  1. HEPARIN [Suspect]
     Indication: THROMBOLYSIS
     Route: 064
  2. ACENOCOUMAROL [Suspect]
     Indication: ANTICOAGULANT THERAPY
     Route: 064
  3. ALTEPLASE [Suspect]
     Indication: THROMBOLYSIS
     Route: 064
  4. LEPIRUDIN [Suspect]
     Route: 064
  5. DANAPAROID [Suspect]
     Indication: ANTICOAGULANT THERAPY
     Route: 064

REACTIONS (1)
  - Premature baby [Unknown]
